FAERS Safety Report 4477326-9 (Version None)
Quarter: 2004Q4

REPORT INFORMATION
  Report Type: 
  Country: None (occurrence: None)
  Receive Date: 20041013
  Receipt Date: 20041008
  Transmission Date: 20050328
  Serious: Yes (Other)
  Sender: FDA-Public Use
  Company Number: 04-0075PO

PATIENT
  Age: 45 Year
  Sex: Female

DRUGS (1)
  1. PONSTEL [Suspect]
     Indication: DYSMENORRHOEA
     Dosage: 500 MG, TID, PO
     Route: 048

REACTIONS (1)
  - BENIGN LARYNGEAL NEOPLASM [None]
